FAERS Safety Report 4437471-0 (Version None)
Quarter: 2004Q3

REPORT INFORMATION
  Report Type: 
  Country: None (occurrence: None)
  Receive Date: 20040831
  Receipt Date: 20040823
  Transmission Date: 20050211
  Serious: Yes (Hospitalization, Other)
  Sender: FDA-Public Use
  Company Number: US-MERCK-0408USA01845

PATIENT
  Age: 50 Year
  Sex: Male

DRUGS (3)
  1. CATAPRES [Concomitant]
     Route: 065
  2. ZETIA [Suspect]
     Route: 048
  3. COUMADIN [Concomitant]
     Route: 065

REACTIONS (1)
  - INTERNATIONAL NORMALISED RATIO INCREASED [None]
